FAERS Safety Report 10414207 (Version 2)
Quarter: 2014Q4

REPORT INFORMATION
  Report Type: Spontaneous
  Country: US (occurrence: US)
  Receive Date: 20140827
  Receipt Date: 20141017
  Transmission Date: 20150528
  Serious: No
  Sender: FDA-Public Use
  Company Number: US-009507513-1408USA013635

PATIENT
  Sex: Female
  Weight: 47.71 kg

DRUGS (1)
  1. NASONEX [Suspect]
     Active Substance: MOMETASONE FUROATE
     Indication: HYPERSENSITIVITY
     Dosage: 2 SPRAYS, ONCE A DAY
     Route: 045

REACTIONS (3)
  - Product odour abnormal [Unknown]
  - Sinusitis [Recovered/Resolved]
  - Ear pain [Recovered/Resolved]
